FAERS Safety Report 17655678 (Version 3)
Quarter: 2020Q2

REPORT INFORMATION
  Report Type: Spontaneous
  Country: FR (occurrence: FR)
  Receive Date: 20200410
  Receipt Date: 20200509
  Transmission Date: 20200713
  Serious: Yes (Death, Life-Threatening)
  Sender: FDA-Public Use
  Company Number: FR-TEVA-2020-FR-1221608

PATIENT
  Age: 80 Year
  Sex: Female
  Weight: 85 kg

DRUGS (15)
  1. SUFENTANIL [Concomitant]
     Active Substance: SUFENTANIL
     Route: 042
  2. NIMBEX [Concomitant]
     Active Substance: CISATRACURIUM BESYLATE
     Route: 042
  3. PERFALGAN [Concomitant]
     Active Substance: ACETAMINOPHEN
     Route: 042
  4. ULTIBRO BREEZHALER [Concomitant]
     Active Substance: GLYCOPYRRONIUM\INDACATEROL
     Route: 055
  5. ROCEPHINE [Concomitant]
     Active Substance: CEFTRIAXONE SODIUM
     Route: 042
     Dates: start: 20200317, end: 20200320
  6. LASILIX 20 MG/2 ML, SOLUTION INJECTABLE EN AMPOULE [Suspect]
     Active Substance: FUROSEMIDE
     Indication: OEDEMA
     Dosage: 2 DOSAGE FORMS
     Route: 042
     Dates: start: 20200319
  7. NORADRENALINE (TARTRATE DE) [Concomitant]
     Route: 042
  8. POTASSIUM (CHLORURE DE) [Concomitant]
     Route: 042
  9. SERESTA 10 MG, COMPRIME [Concomitant]
     Active Substance: OXAZEPAM
     Route: 048
  10. AZITHROMYCINE ANHYDRE [Suspect]
     Active Substance: AZITHROMYCIN ANHYDROUS
     Indication: CORONAVIRUS INFECTION
     Dosage: 250 MILLIGRAM
     Route: 048
     Dates: start: 20200319, end: 20200323
  11. PLAQUENIL [Suspect]
     Active Substance: HYDROXYCHLOROQUINE SULFATE
     Indication: CORONAVIRUS INFECTION
     Route: 048
     Dates: start: 20200319, end: 20200325
  12. MIDAZOLAM. [Concomitant]
     Active Substance: MIDAZOLAM
     Route: 042
  13. TAZOCILLINE 4 G/500 MG, POUDRE POUR SOLUTION POUR PERFUSION [Concomitant]
     Active Substance: PIPERACILLIN SODIUM\TAZOBACTAM SODIUM
     Dosage: 4 DOSAGE FORMS
     Route: 042
  14. TRANSIPEG [Concomitant]
     Route: 048
  15. EFFEXOR [Concomitant]
     Active Substance: VENLAFAXINE HYDROCHLORIDE
     Route: 048

REACTIONS (2)
  - Hypokalaemia [Recovered/Resolved]
  - Ventricular tachycardia [Recovered/Resolved]

NARRATIVE: CASE EVENT DATE: 20200326
